FAERS Safety Report 13384261 (Version 1)
Quarter: 2017Q1

REPORT INFORMATION
  Report Type: Report from Study
  Country: US (occurrence: US)
  Receive Date: 20170329
  Receipt Date: 20170329
  Transmission Date: 20170429
  Serious: Yes (Hospitalization)
  Sender: FDA-Public Use
  Company Number: US-EISAI MEDICAL RESEARCH-EC-2017-025671

PATIENT
  Age: 57 Year
  Sex: Male

DRUGS (3)
  1. NORVASC [Concomitant]
     Active Substance: AMLODIPINE BESYLATE
  2. ZOFRAN [Concomitant]
     Active Substance: ONDANSETRON HYDROCHLORIDE
  3. LENVIMA [Suspect]
     Active Substance: LENVATINIB
     Indication: THYROID CANCER
     Route: 048
     Dates: start: 20161115, end: 201703

REACTIONS (5)
  - Arterial haemorrhage [Unknown]
  - Fistula [Unknown]
  - Blood pressure increased [Unknown]
  - Cerebral thrombosis [Unknown]
  - Nausea [Unknown]

NARRATIVE: CASE EVENT DATE: 201703
